FAERS Safety Report 24644292 (Version 1)
Quarter: 2024Q4

REPORT INFORMATION
  Report Type: Spontaneous
  Country: US (occurrence: US)
  Receive Date: 20241120
  Receipt Date: 20241120
  Transmission Date: 20250114
  Serious: No
  Sender: AMGEN
  Company Number: US-AMGEN-USASP2024226110

PATIENT
  Age: 69 Year
  Sex: Female
  Weight: 24 kg

DRUGS (19)
  1. REPATHA [Suspect]
     Active Substance: EVOLOCUMAB
     Indication: Hypercholesterolaemia
     Dosage: 420 MILLIGRAM
     Route: 058
     Dates: start: 20241028
  2. NEBIVOLOL [Concomitant]
     Active Substance: NEBIVOLOL
     Dosage: 10 MILLIGRAM
  3. NEBIVOLOL [Concomitant]
     Active Substance: NEBIVOLOL
     Dosage: 20 MILLIGRAM
  4. PLAVIX [Concomitant]
     Active Substance: CLOPIDOGREL BISULFATE
     Dosage: 75 MILLIGRAM, QD
  5. ASPIRIN [Concomitant]
     Active Substance: ASPIRIN
     Dosage: 81 MILLIGRAM, QD
  6. PREDNISOLONE ACETATE [Concomitant]
     Active Substance: PREDNISOLONE ACETATE
     Indication: Eyelid cyst
     Dosage: UNK UNK, AS NECESSARY (OPHTHALMIC AS NEEDED)
     Route: 047
  7. TYLENOL [Concomitant]
     Active Substance: ACETAMINOPHEN
     Indication: Pain
     Dosage: 500 MILLIGRAM, AS NECESSARY (PRN)
  8. DOCUSATE SODIUM [Concomitant]
     Active Substance: DOCUSATE SODIUM
     Indication: Faeces hard
  9. CLARITIN [Concomitant]
     Active Substance: LORATADINE
     Dosage: UNK UNK, AS NECESSARY
  10. ZYRTEC [Concomitant]
     Active Substance: CETIRIZINE HYDROCHLORIDE
     Dosage: UNK UNK, AS NECESSARY
  11. PATADAY [Concomitant]
     Active Substance: OLOPATADINE HYDROCHLORIDE
     Dosage: EYE GTTS , QD
  12. BUDESONIDE [Concomitant]
     Active Substance: BUDESONIDE
     Dosage: UNK UNK, QD
  13. MELATONIN [Concomitant]
     Active Substance: MELATONIN
     Dosage: UNK UNK, AS NECESSARY
  14. LIDOCAINE [Concomitant]
     Active Substance: LIDOCAINE
  15. Sterols + sterolins [Concomitant]
     Indication: Blood cholesterol abnormal
  16. COENZYME Q10 [Concomitant]
     Active Substance: DIETARY SUPPLEMENT\UBIDECARENONE
     Dosage: 300 MILLIGRAM, QD
  17. Echinacea + goldenseal [Concomitant]
  18. VITAMIN D [Concomitant]
     Active Substance: VITAMIN D NOS
     Dosage: 100 MICROGRAM
  19. OMEGA 3 [Concomitant]
     Active Substance: CAPSAICIN
     Indication: Eye disorder

REACTIONS (4)
  - Dysstasia [Unknown]
  - Back pain [Not Recovered/Not Resolved]
  - Swelling [Unknown]
  - Blood pressure increased [Unknown]

NARRATIVE: CASE EVENT DATE: 20241102
